FAERS Safety Report 21796669 (Version 7)
Quarter: 2023Q1

REPORT INFORMATION
  Report Type: Spontaneous
  Country: CA (occurrence: CA)
  Receive Date: 20221229
  Receipt Date: 20230301
  Transmission Date: 20230418
  Serious: Yes (Hospitalization, Other)
  Sender: FDA-Public Use
  Company Number: CA-CELLTRION INC.-2021CA014584

PATIENT

DRUGS (15)
  1. INFLECTRA [Suspect]
     Active Substance: INFLIXIMAB-DYYB
     Indication: Crohn^s disease
     Dosage: 400 MG 0, 2, 6 THEN EVERY 8 WEEKS
     Route: 042
     Dates: start: 20190830, end: 20220330
  2. INFLECTRA [Suspect]
     Active Substance: INFLIXIMAB-DYYB
     Dosage: 400 MG 0, 2, 6  THEN EVERY 8 WEEKS
     Route: 042
     Dates: start: 20210615
  3. INFLECTRA [Suspect]
     Active Substance: INFLIXIMAB-DYYB
     Dosage: 400 MG 0, 2, 6 THEN EVERY 8 WEEKS
     Route: 042
     Dates: start: 20220204
  4. INFLECTRA [Suspect]
     Active Substance: INFLIXIMAB-DYYB
     Dosage: 400 MG 0, 2, 6  THEN EVERY 8 WEEKS
     Route: 042
     Dates: start: 20220330
  5. INFLECTRA [Suspect]
     Active Substance: INFLIXIMAB-DYYB
     Dosage: 400 MG EVERY 4 WEEKS
     Route: 042
     Dates: start: 20220502, end: 20221102
  6. INFLECTRA [Suspect]
     Active Substance: INFLIXIMAB-DYYB
     Dosage: 400 MG EVERY 4 WEEKS
     Route: 042
     Dates: start: 20220926
  7. INFLECTRA [Suspect]
     Active Substance: INFLIXIMAB-DYYB
     Dosage: 400 MG, EVERY 6 WEEKS
     Route: 042
     Dates: start: 20221215
  8. INFLECTRA [Suspect]
     Active Substance: INFLIXIMAB-DYYB
     Dosage: 400 MG, EVERY 6 WEEKS
     Dates: start: 20230130
  9. AZATHIOPRINE [Concomitant]
     Active Substance: AZATHIOPRINE
     Dosage: UNK
     Route: 065
     Dates: end: 202112
  10. CELEBREX [Concomitant]
     Active Substance: CELECOXIB
     Indication: Calcification of muscle
     Dosage: 200 MG, 1X/DAY
     Route: 065
     Dates: start: 2019
  11. ENTOCORT [Concomitant]
     Active Substance: BUDESONIDE
     Dosage: 1 DF, DOSAGE INFO IS NOT AVAILABLE
     Route: 065
  12. METHOTREXATE [Concomitant]
     Active Substance: METHOTREXATE
     Dosage: UNK
     Route: 065
     Dates: end: 202112
  13. METHOTREXATE [Concomitant]
     Active Substance: METHOTREXATE
     Dosage: 1 DF,DOSAGE INFO IS NOT AVAILABLE
     Route: 065
     Dates: end: 202112
  14. METHOTREXATE [Concomitant]
     Active Substance: METHOTREXATE
     Dosage: 1 DF,DOSAGE INFO IS NOT AVAILABLE
     Route: 065
  15. SULFASALAZINE [Concomitant]
     Active Substance: SULFASALAZINE
     Dosage: 1 DF
     Route: 065

REACTIONS (38)
  - Clostridium difficile infection [Recovered/Resolved]
  - Therapeutic response shortened [Unknown]
  - Fatigue [Recovering/Resolving]
  - Defaecation urgency [Recovering/Resolving]
  - Condition aggravated [Not Recovered/Not Resolved]
  - Mouth ulceration [Unknown]
  - Arthralgia [Recovering/Resolving]
  - Arthritis [Unknown]
  - Ocular hyperaemia [Unknown]
  - Eye pruritus [Unknown]
  - Dry eye [Recovering/Resolving]
  - Eczema [Unknown]
  - Rash [Not Recovered/Not Resolved]
  - Rash [Not Recovered/Not Resolved]
  - Irritability [Unknown]
  - Food allergy [Unknown]
  - Oral disorder [Unknown]
  - Throat lesion [Unknown]
  - Nasal disorder [Unknown]
  - Liver disorder [Not Recovered/Not Resolved]
  - Feeling abnormal [Not Recovered/Not Resolved]
  - Sinusitis [Not Recovered/Not Resolved]
  - Furuncle [Not Recovered/Not Resolved]
  - Post procedural infection [Recovering/Resolving]
  - Impaired healing [Recovering/Resolving]
  - Blister [Recovered/Resolved]
  - Skin lesion [Recovered/Resolved]
  - Diarrhoea [Not Recovered/Not Resolved]
  - Malaise [Not Recovered/Not Resolved]
  - Blister [Recovering/Resolving]
  - Off label use [Unknown]
  - Intentional product use issue [Unknown]
  - Product dose omission issue [Unknown]
  - Off label use [Unknown]
  - Weight decreased [Unknown]
  - Skin lesion [Unknown]
  - Skin irritation [Unknown]
  - Skin atrophy [Unknown]

NARRATIVE: CASE EVENT DATE: 20210101
